FAERS Safety Report 5160552-3 (Version None)
Quarter: 2006Q4

REPORT INFORMATION
  Report Type: 
  Country: None (occurrence: None)
  Receive Date: 20061121
  Receipt Date: 20061108
  Transmission Date: 20070319
  Serious: Yes (Death, Hospitalization)
  Sender: FDA-Public Use
  Company Number: 2006140987

PATIENT
  Sex: Male

DRUGS (1)
  1. CELEBREX [Suspect]
     Dates: start: 20030723, end: 20041005

REACTIONS (3)
  - CARDIOVASCULAR DISORDER [None]
  - INJURY [None]
  - RENAL FAILURE [None]
